FAERS Safety Report 25386068 (Version 1)
Quarter: 2025Q2

REPORT INFORMATION
  Report Type: Spontaneous
  Country: CA (occurrence: None)
  Receive Date: 20250531
  Receipt Date: 20250531
  Transmission Date: 20250717
  Serious: Yes (Disabling)
  Sender: FDA-CTU
  Company Number: None

PATIENT
  Age: 66 Year
  Sex: Female
  Weight: 91.35 kg

DRUGS (4)
  1. TIRZEPATIDE [Suspect]
     Active Substance: TIRZEPATIDE
     Indication: Weight decreased
     Route: 048
     Dates: start: 20250513, end: 20250530
  2. METFORMIN [Concomitant]
     Active Substance: METFORMIN HYDROCHLORIDE
  3. ESTRADOIL [Concomitant]
  4. GLP-1 [Concomitant]

REACTIONS (2)
  - Myalgia [None]
  - Abdominal pain upper [None]

NARRATIVE: CASE EVENT DATE: 20250527
